FAERS Safety Report 19864915 (Version 3)
Quarter: 2021Q4

REPORT INFORMATION
  Report Type: Spontaneous
  Country: DE (occurrence: ES)
  Receive Date: 20210922
  Receipt Date: 20211013
  Transmission Date: 20220303
  Serious: Yes (Life-Threatening, Other)
  Sender: FDA-Public Use
  Company Number: ES-ENDO PHARMACEUTICALS INC-2021-011756

PATIENT
  Age: 3 Decade
  Sex: Male

DRUGS (1)
  1. AVEED [Suspect]
     Active Substance: TESTOSTERONE UNDECANOATE
     Indication: Klinefelter^s syndrome
     Dosage: 1000 MG, UNKNOWN
     Route: 051
     Dates: start: 2015, end: 2018

REACTIONS (3)
  - Kounis syndrome [Recovered/Resolved]
  - Anaphylactic shock [Recovered/Resolved]
  - Allergic reaction to excipient [Recovered/Resolved]

NARRATIVE: CASE EVENT DATE: 20180101
